FAERS Safety Report 7820601-8 (Version None)
Quarter: 2011Q4

REPORT INFORMATION
  Report Type: 
  Country: None (occurrence: None)
  Receive Date: 20111018
  Receipt Date: 20111014
  Transmission Date: 20120403
  Serious: Yes (Hospitalization, Disabling)
  Sender: FDA-Public Use
  Company Number: JP-ABBOTT-11P-087-0720662-00

PATIENT
  Sex: Male
  Weight: 64 kg

DRUGS (7)
  1. HUMIRA [Suspect]
     Dates: start: 20101222, end: 20101222
  2. HUMIRA [Suspect]
     Dates: start: 20110105, end: 20110413
  3. WARFARIN SODIUM [Concomitant]
     Indication: PROTEIN S DEFICIENCY
     Route: 048
  4. CILOSTAZOL [Concomitant]
     Indication: PROTEIN S DEFICIENCY
     Route: 048
  5. HUMIRA [Suspect]
     Indication: CROHN'S DISEASE
     Route: 058
     Dates: start: 20101208, end: 20101208
  6. BENZBROMARONE [Concomitant]
     Indication: HYPERURICAEMIA
     Route: 048
  7. RABEPRAZOLE SODIUM [Concomitant]
     Indication: PRODUCT USED FOR UNKNOWN INDICATION
     Route: 048

REACTIONS (2)
  - MONONEUROPATHY MULTIPLEX [None]
  - CRANIAL NERVE PALSIES MULTIPLE [None]
